FAERS Safety Report 7405445-3 (Version None)
Quarter: 2011Q2

REPORT INFORMATION
  Report Type: 
  Country: None (occurrence: None)
  Receive Date: 20110411
  Receipt Date: 20110404
  Transmission Date: 20111010
  Serious: Yes (Hospitalization)
  Sender: FDA-Public Use
  Company Number: FR-SANOFI-AVENTIS-2011SA021182

PATIENT
  Age: 51 Year
  Sex: Male

DRUGS (9)
  1. STILNOX [Suspect]
     Route: 048
     Dates: end: 20110120
  2. LEXOMIL [Suspect]
     Route: 048
  3. LEXOMIL [Suspect]
     Route: 048
     Dates: start: 20110119, end: 20110120
  4. CLOPIXOL [Concomitant]
     Dates: start: 20110112
  5. METHADONE [Suspect]
     Dates: start: 20110121
  6. ACUPAN [Concomitant]
     Dates: start: 20110112
  7. METHADONE [Suspect]
     Indication: DRUG ABUSE
  8. ATARAX [Concomitant]
     Route: 048
     Dates: start: 20110119, end: 20110119
  9. ATARAX [Concomitant]
     Route: 048
     Dates: start: 20110120, end: 20110120

REACTIONS (3)
  - SOMNOLENCE [None]
  - MIOSIS [None]
  - BRADYPNOEA [None]
